FAERS Safety Report 6845987-2 (Version None)
Quarter: 2010Q3

REPORT INFORMATION
  Report Type: 
  Country: None (occurrence: None)
  Receive Date: 20100715
  Receipt Date: 20070904
  Transmission Date: 20110219
  Serious: No
  Sender: FDA-Public Use
  Company Number: US-PFIZER INC-2007074381

PATIENT
  Age: 60 Year
  Sex: Female
  Weight: 77.3 kg

DRUGS (3)
  1. CHANTIX [Suspect]
     Indication: SMOKING CESSATION THERAPY
  2. EVISTA [Concomitant]
  3. CALCIUM [Concomitant]

REACTIONS (3)
  - ABNORMAL DREAMS [None]
  - POLLAKIURIA [None]
  - SOMNOLENCE [None]
